FAERS Safety Report 11074330 (Version 1)
Quarter: 2015Q2

REPORT INFORMATION
  Report Type: Spontaneous
  Country: ES (occurrence: None)
  Receive Date: 20150427
  Receipt Date: 20150427
  Transmission Date: 20150821
  Serious: Yes (Other)
  Sender: FDA-Public Use
  Company Number: 2015-11134

PATIENT
  Sex: Male

DRUGS (1)
  1. EYLEA [Suspect]
     Active Substance: AFLIBERCEPT
     Indication: PRODUCT USED FOR UNKNOWN INDICATION
     Dates: start: 20150416, end: 20150416

REACTIONS (4)
  - Blindness [None]
  - Visual impairment [None]
  - Eye inflammation [None]
  - Wrong technique in drug usage process [None]

NARRATIVE: CASE EVENT DATE: 201504
